FAERS Safety Report 20120335 (Version 1)
Quarter: 2021Q4

REPORT INFORMATION
  Report Type: Spontaneous
  Country: US (occurrence: US)
  Receive Date: 20211126
  Receipt Date: 20211126
  Transmission Date: 20220304
  Serious: No
  Sender: FDA-Public Use
  Company Number: US-009507513-2111USA005682

PATIENT
  Sex: Female

DRUGS (1)
  1. STEGLATRO [Suspect]
     Active Substance: ERTUGLIFLOZIN PIDOLATE

REACTIONS (1)
  - Urinary tract infection [Unknown]
